FAERS Safety Report 4602749-4 (Version None)
Quarter: 2005Q1

REPORT INFORMATION
  Report Type: 
  Country: None (occurrence: None)
  Receive Date: 20050309
  Receipt Date: 20041007
  Transmission Date: 20050727
  Serious: Yes (Disabling)
  Sender: FDA-Public Use
  Company Number: DE-MERCK-0410DEU00385

PATIENT
  Age: 79 Year
  Sex: Male

DRUGS (11)
  1. VIOXX [Suspect]
     Indication: PAIN
     Route: 048
     Dates: start: 20030828, end: 20040701
  2. INSULIN [Concomitant]
     Indication: DIABETES MELLITUS
     Route: 051
  3. HYDROCHLOROTHIAZIDE AND RAMIPRIL [Concomitant]
     Indication: CORONARY ARTERY DISEASE
     Route: 048
     Dates: start: 20030501
  4. HYDROCHLOROTHIAZIDE AND RAMIPRIL [Concomitant]
     Indication: HYPERTENSION
     Route: 048
     Dates: start: 20030501
  5. CLONIDINE [Concomitant]
     Route: 065
  6. ASPIRIN [Concomitant]
     Route: 048
     Dates: start: 20030501
  7. METOPROLOL SUCCINATE [Concomitant]
     Indication: CORONARY ARTERY DISEASE
     Route: 048
     Dates: start: 20030501
  8. METOPROLOL SUCCINATE [Concomitant]
     Indication: HYPERTENSION
     Route: 048
     Dates: start: 20030501
  9. ATORVASTATIN CALCIUM [Concomitant]
     Indication: HYPERCHOLESTEROLAEMIA
     Route: 048
     Dates: start: 20030501
  10. CLOPIDOGREL BISULFATE [Concomitant]
     Route: 065
  11. CLOPIDOGREL BISULFATE [Concomitant]
     Indication: ARTERIAL OCCLUSIVE DISEASE
     Route: 048
     Dates: start: 20030501

REACTIONS (1)
  - SUDDEN HEARING LOSS [None]
